FAERS Safety Report 5574984-2 (Version None)
Quarter: 2007Q4

REPORT INFORMATION
  Report Type: 
  Country: None (occurrence: None)
  Receive Date: 20071227
  Receipt Date: 20071219
  Transmission Date: 20080405
  Serious: Yes (Hospitalization)
  Sender: FDA-Public Use
  Company Number: B0500867A

PATIENT
  Age: 55 Year
  Sex: Female
  Weight: 55 kg

DRUGS (5)
  1. LAPATINIB [Suspect]
     Indication: BREAST CANCER METASTATIC
     Dosage: 1250MG PER DAY
     Route: 048
     Dates: start: 20070917
  2. XELODA [Suspect]
     Indication: BREAST CANCER METASTATIC
     Dosage: 3000MG PER DAY
     Route: 048
     Dates: start: 20070917
  3. DOLIPRANE [Concomitant]
     Indication: PAIN
     Dosage: 2000MG PER DAY
     Route: 065
  4. INEXIUM [Concomitant]
     Indication: ABDOMINAL PAIN UPPER
     Dosage: 40MG PER DAY
     Route: 065
  5. SERC [Concomitant]
     Route: 065

REACTIONS (4)
  - DIARRHOEA [None]
  - TINNITUS [None]
  - VERTIGO [None]
  - WEIGHT DECREASED [None]
